FAERS Safety Report 12590335 (Version 3)
Quarter: 2017Q1

REPORT INFORMATION
  Report Type: Spontaneous
  Country: US (occurrence: US)
  Receive Date: 20160725
  Receipt Date: 20170215
  Transmission Date: 20170428
  Serious: No
  Sender: FDA-Public Use
  Company Number: US-ACTELION-A-US2015-129028

PATIENT
  Age: 56 Year
  Sex: Male

DRUGS (5)
  1. VELETRI [Suspect]
     Active Substance: EPOPROSTENOL
     Dosage: 36 NG/KG, PER MIN
     Route: 042
  2. COUMADIN [Concomitant]
     Active Substance: WARFARIN SODIUM
  3. REVATIO [Concomitant]
     Active Substance: SILDENAFIL CITRATE
  4. VELETRI [Suspect]
     Active Substance: EPOPROSTENOL
     Indication: PULMONARY ARTERIAL HYPERTENSION
     Dosage: 30 NG/KG, PER MIN
     Route: 042
     Dates: start: 20150216
  5. TRACLEER [Concomitant]
     Active Substance: BOSENTAN
     Indication: PULMONARY ARTERIAL HYPERTENSION

REACTIONS (8)
  - Nausea [Unknown]
  - Vomiting [Unknown]
  - Drug dose omission [Unknown]
  - Pain [Unknown]
  - Migraine [Not Recovered/Not Resolved]
  - Pain in jaw [Unknown]
  - Headache [Unknown]
  - Device use error [Unknown]

NARRATIVE: CASE EVENT DATE: 201606
